FAERS Safety Report 20664518 (Version 1)
Quarter: 2022Q2

REPORT INFORMATION
  Report Type: Spontaneous
  Country: None (occurrence: CA)
  Receive Date: 20220401
  Receipt Date: 20220401
  Transmission Date: 20220721
  Serious: Yes (Hospitalization, Other)
  Sender: FDA-Public Use
  Company Number: CA-B.Braun Medical Inc.-2127329

PATIENT
  Age: 74 Year
  Sex: Female

DRUGS (1)
  1. POTASSIUM CHLORIDE [Suspect]
     Active Substance: POTASSIUM CHLORIDE

REACTIONS (25)
  - Adenocarcinoma [Unknown]
  - Asthma [None]
  - Breath sounds abnormal [None]
  - Dyspnoea [None]
  - Emphysema [None]
  - Eosinophilia [None]
  - Full blood count abnormal [None]
  - Gastrooesophageal reflux disease [None]
  - Hypercapnia [None]
  - Hypertension [None]
  - Hyperthyroidism [None]
  - Influenza [None]
  - Loss of personal independence in daily activities [None]
  - Multiple allergies [None]
  - Osteoporosis [None]
  - Pain in extremity [None]
  - Pneumonitis [None]
  - Pneumothorax spontaneous [None]
  - Polymyalgia rheumatica [None]
  - Productive cough [None]
  - Respiratory tract infection [None]
  - Sleep disorder due to a general medical condition [None]
  - Therapeutic product effect incomplete [None]
  - Upper respiratory tract infection [None]
  - Wheezing [None]
